FAERS Safety Report 10625290 (Version 1)
Quarter: 2014Q4

REPORT INFORMATION
  Report Type: Spontaneous
  Country: US (occurrence: None)
  Receive Date: 20141121
  Receipt Date: 20141121
  Transmission Date: 20150529
  Serious: Yes (Other)
  Sender: FDA-Public Use
  Company Number: M-14-032

PATIENT
  Age: 60 Year
  Sex: Male

DRUGS (2)
  1. METFORMIN [Concomitant]
     Active Substance: METFORMIN HYDROCHLORIDE
  2. PILOCARPINE [Suspect]
     Active Substance: PILOCARPINE
     Indication: DRY MOUTH
     Dosage: 5 MG - 5 X DAY, LITTLE MORE THAN A YEAR

REACTIONS (4)
  - Speech disorder [None]
  - Dry mouth [None]
  - Confusional state [None]
  - Dizziness [None]

NARRATIVE: CASE EVENT DATE: 20140507
